FAERS Safety Report 5444328-5 (Version None)
Quarter: 2007Q3

REPORT INFORMATION
  Report Type: 
  Country: None (occurrence: None)
  Receive Date: 20070906
  Receipt Date: 20070903
  Transmission Date: 20080115
  Serious: Yes (Death, Other)
  Sender: FDA-Public Use
  Company Number: US-BRISTOL-MYERS SQUIBB COMPANY-13896667

PATIENT
  Age: 73 Year
  Sex: Male
  Weight: 67 kg

DRUGS (9)
  1. CETUXIMAB [Suspect]
     Indication: NON-SMALL CELL LUNG CANCER
     Dosage: 400 MG/M2 IV OVER 2 HRS ON WEEK 1, CYCLE 1 ONLY
     Route: 042
     Dates: start: 20070613, end: 20070823
  2. CARBOPLATIN [Suspect]
     Indication: NON-SMALL CELL LUNG CANCER
     Dosage: DOSAGE: AUC6
     Route: 042
     Dates: start: 20070613, end: 20070816
  3. PACLITAXEL [Suspect]
     Indication: NON-SMALL CELL LUNG CANCER
     Route: 042
     Dates: start: 20070613, end: 20070816
  4. BEVACIZUMAB [Suspect]
     Indication: NON-SMALL CELL LUNG CANCER
     Route: 042
     Dates: start: 20070613, end: 20070703
  5. CLINDAMYCIN HCL [Concomitant]
  6. COUMADIN [Concomitant]
     Route: 048
  7. DEXAMETHASONE 0.5MG TAB [Concomitant]
     Route: 048
  8. ISRADIPINE [Concomitant]
     Route: 048
  9. LOPERAMIDE HCL [Concomitant]
     Route: 048

REACTIONS (5)
  - COORDINATION ABNORMAL [None]
  - DEATH [None]
  - EMBOLISM [None]
  - FATIGUE [None]
  - RASH [None]
